FAERS Safety Report 4708403-2 (Version None)
Quarter: 2005Q3

REPORT INFORMATION
  Report Type: 
  Country: None (occurrence: None)
  Receive Date: 20050707
  Receipt Date: 20050628
  Transmission Date: 20060218
  Serious: Yes (Other)
  Sender: FDA-Public Use
  Company Number: US-JNJFOC-20050607506

PATIENT
  Age: 47 Year
  Sex: Male
  Weight: 86.18 kg

DRUGS (1)
  1. RISPERDAL [Suspect]
     Indication: SCHIZOPHRENIA
     Route: 049

REACTIONS (2)
  - HOMICIDAL IDEATION [None]
  - PHYSICAL ASSAULT [None]
